FAERS Safety Report 10133370 (Version 1)
Quarter: 2014Q2

REPORT INFORMATION
  Report Type: Spontaneous
  Country: US (occurrence: US)
  Receive Date: 20140428
  Receipt Date: 20140428
  Transmission Date: 20141212
  Serious: Yes (Hospitalization, Other)
  Sender: FDA-Public Use
  Company Number: US-ELI_LILLY_AND_COMPANY-US201404006003

PATIENT
  Age: 71 Year
  Sex: Male

DRUGS (7)
  1. HUMALOG 25% LISPRO, 75% NPL [Suspect]
     Indication: DIABETES MELLITUS
     Dosage: UNK, BID
     Route: 065
     Dates: start: 201304
  2. VICTOZA [Concomitant]
  3. WARFARIN [Concomitant]
  4. LISINOPRIL [Concomitant]
  5. PRAVASTATIN [Concomitant]
  6. TERAZOSIN [Concomitant]
     Dosage: 10 MG, UNK
  7. SERTRALINE [Concomitant]
     Dosage: 50 MG, QD

REACTIONS (5)
  - Cystitis [Recovered/Resolved]
  - Renal impairment [Recovered/Resolved]
  - Fall [Unknown]
  - Head injury [Unknown]
  - Blood glucose increased [Unknown]
